FAERS Safety Report 5999999-1 (Version None)
Quarter: 2008Q4

REPORT INFORMATION
  Report Type: 
  Country: None (occurrence: None)
  Receive Date: 20081211
  Receipt Date: 20081211
  Transmission Date: 20090506
  Serious: Yes (Other)
  Sender: FDA-Public Use
  Company Number: None

PATIENT
  Sex: Male
  Weight: 102.9665 kg

DRUGS (1)
  1. ISOSORBIDE MONONITRATE [Suspect]
     Indication: HYPERTENSION
     Dosage: 1 TABLET 1 X DAY
     Dates: start: 20080301, end: 20081201

REACTIONS (7)
  - ANOREXIA [None]
  - ASTHENIA [None]
  - HEADACHE [None]
  - HYPERSOMNIA [None]
  - INCORRECT DOSE ADMINISTERED [None]
  - INFLUENZA [None]
  - PRODUCT QUALITY ISSUE [None]
